FAERS Safety Report 19987242 (Version 3)
Quarter: 2021Q4

REPORT INFORMATION
  Report Type: Spontaneous
  Country: US (occurrence: US)
  Receive Date: 20211022
  Receipt Date: 20211029
  Transmission Date: 20220303
  Serious: Yes (Hospitalization, Other)
  Sender: FDA-Public Use
  Company Number: US-SA-2021SA345959

PATIENT
  Age: 72 Year
  Sex: Male
  Weight: 59.2 kg

DRUGS (2)
  1. VANDETANIB [Suspect]
     Active Substance: VANDETANIB
     Indication: Medullary thyroid cancer
     Dosage: 300 MG, QD
     Route: 048
     Dates: start: 20210716, end: 20210827
  2. VANDETANIB [Suspect]
     Active Substance: VANDETANIB
     Dosage: 200 MG, QD
     Route: 048
     Dates: start: 20210813, end: 20210826

REACTIONS (4)
  - Erythema multiforme [Recovered/Resolved]
  - Oedema [Unknown]
  - Rash [Unknown]
  - Asthenia [Unknown]

NARRATIVE: CASE EVENT DATE: 20210813
